FAERS Safety Report 20986265 (Version 2)
Quarter: 2022Q3

REPORT INFORMATION
  Report Type: Report from Study
  Country: KR (occurrence: KR)
  Receive Date: 20220621
  Receipt Date: 20220720
  Transmission Date: 20221027
  Serious: Yes (Other)
  Sender: FDA-Public Use
  Company Number: KR-AMGEN-KORNI2022103862

PATIENT
  Age: 44 Year
  Sex: Female
  Weight: 71 kg

DRUGS (17)
  1. CARFILZOMIB [Suspect]
     Active Substance: CARFILZOMIB
     Indication: Plasma cell myeloma
     Dosage: 48.33 MILLIGRAM
     Route: 042
     Dates: start: 20220127
  2. DEXAMETHASONE [Suspect]
     Active Substance: DEXAMETHASONE
     Indication: Plasma cell myeloma
     Dosage: 20 MILLIGRAM
     Route: 065
     Dates: start: 20220127
  3. LENALIDOMIDE [Suspect]
     Active Substance: LENALIDOMIDE
     Indication: Plasma cell myeloma
     Dosage: 450-525 MILLIGRAM
     Route: 065
     Dates: start: 20220127
  4. FILGRASTIM [Concomitant]
     Active Substance: FILGRASTIM
     Dosage: 300 MICROGRAM
     Dates: start: 20220203, end: 20220310
  5. PHENIRAMINE [Concomitant]
     Active Substance: PHENIRAMINE
     Dosage: 4 MILLIGRAM
     Dates: start: 20220218
  6. Vitaferol [Concomitant]
     Dosage: 1 UNK
     Dates: start: 20211214, end: 20220302
  7. HYDROCORTISONE [Concomitant]
     Active Substance: HYDROCORTISONE
     Dosage: 100 MILLIGRAM
     Dates: start: 20220218, end: 20220218
  8. IMMUNOGLOBULINS [Concomitant]
     Dosage: 36000 MILLIGRAM
     Dates: start: 20220218, end: 20220218
  9. LAFUTIDINE [Concomitant]
     Active Substance: LAFUTIDINE
     Dosage: 10 MILLIGRAM
     Dates: start: 20220124, end: 20220304
  10. LEVOFLOXACIN [Concomitant]
     Active Substance: LEVOFLOXACIN
     Dosage: 500 MILLIGRAM
     Dates: start: 20220124, end: 20220302
  11. MAGNES [Concomitant]
     Dosage: 470 MILLIGRAM
     Dates: start: 20220210, end: 20220302
  12. MAGNESIUM HYDROXIDE [Concomitant]
     Active Substance: MAGNESIUM HYDROXIDE
     Dosage: 500 MILLIGRAM
     Dates: start: 20220124, end: 20220313
  13. ASPIRIN [Concomitant]
     Active Substance: ASPIRIN
     Dosage: 100 MILLIGRAM
     Dates: start: 20220124, end: 20220321
  14. FOTAGEL [Concomitant]
     Dosage: 20 MILLILITER
     Dates: start: 20220211, end: 20220213
  15. SULFAMETHOXAZOLE\TRIMETHOPRIM [Concomitant]
     Active Substance: SULFAMETHOXAZOLE\TRIMETHOPRIM
     Dosage: 400 MILLIGRAM
     Dates: start: 20211214, end: 20220310
  16. TIROPRAMIDE [Concomitant]
     Active Substance: TIROPRAMIDE
     Dosage: 100 MILLIGRAM
     Dates: start: 20220211, end: 20220213
  17. Vacrax [Concomitant]
     Dosage: 400 MILLIGRAM
     Dates: start: 20211214, end: 20220321

REACTIONS (2)
  - Polyneuropathy [Unknown]
  - Liver disorder [Unknown]

NARRATIVE: CASE EVENT DATE: 20220224
